FAERS Safety Report 5358791-1 (Version None)
Quarter: 2007Q2

REPORT INFORMATION
  Report Type: 
  Country: None (occurrence: None)
  Receive Date: 20070615
  Receipt Date: 20070614
  Transmission Date: 20071010
  Serious: Yes (Hospitalization)
  Sender: FDA-Public Use
  Company Number: FRWYE852814JUN07

PATIENT
  Sex: Female

DRUGS (3)
  1. TAZOCILLINE [Suspect]
     Indication: NEONATAL CANDIDA INFECTION
     Dosage: UNKNOWN
     Route: 042
     Dates: start: 20070406, end: 20070411
  2. ANCOTIL [Suspect]
     Indication: NEONATAL CANDIDA INFECTION
     Dosage: UNKNOWN
     Route: 042
     Dates: start: 20070401, end: 20070411
  3. FUNGIZONE [Suspect]
     Indication: NEONATAL CANDIDA INFECTION
     Dosage: UNKNOWN
     Route: 042
     Dates: start: 20070401, end: 20070411

REACTIONS (2)
  - CONVULSION NEONATAL [None]
  - ELECTROENCEPHALOGRAM ABNORMAL [None]
